FAERS Safety Report 12177640 (Version 1)
Quarter: 2016Q1

REPORT INFORMATION
  Report Type: Report from Study
  Country: US (occurrence: US)
  Receive Date: 20160315
  Receipt Date: 20160315
  Transmission Date: 20160526
  Serious: Yes (Other)
  Sender: FDA-Public Use
  Company Number: PHHY2014US159835

PATIENT
  Age: 58 Year
  Sex: Female

DRUGS (16)
  1. TRAMADOL. [Concomitant]
     Active Substance: TRAMADOL
     Indication: PAIN
     Route: 065
     Dates: start: 20140820
  2. VITAMIN C [Concomitant]
     Active Substance: ASCORBIC ACID
     Indication: PROPHYLAXIS
     Route: 065
     Dates: start: 20140820
  3. ALBUTEROL. [Concomitant]
     Active Substance: ALBUTEROL
     Indication: CHEST DISCOMFORT
  4. VITAMIN E [Concomitant]
     Active Substance: .ALPHA.-TOCOPHEROL
     Indication: PROPHYLAXIS
     Route: 065
     Dates: start: 20140820, end: 20141120
  5. GUAIFENESIN. [Concomitant]
     Active Substance: GUAIFENESIN
     Indication: BRONCHITIS
     Route: 065
     Dates: start: 20141120
  6. MAGNESIUM HYDROXIDE. [Concomitant]
     Active Substance: MAGNESIUM HYDROXIDE
     Indication: CONSTIPATION
     Route: 065
     Dates: start: 20141120
  7. FLUTICASONE [Concomitant]
     Active Substance: FLUTICASONE\FLUTICASONE PROPIONATE
     Indication: BRONCHITIS
     Route: 065
     Dates: start: 20141120
  8. ALBUTEROL. [Concomitant]
     Active Substance: ALBUTEROL
     Indication: COUGH
  9. MILNACIPRAN [Concomitant]
     Active Substance: MILNACIPRAN
     Indication: FIBROMYALGIA
     Route: 065
     Dates: start: 20140820, end: 20141120
  10. AZITHROMYCINE [Concomitant]
     Active Substance: AZITHROMYCIN DIHYDRATE
     Indication: BRONCHITIS
     Route: 065
     Dates: start: 20141120
  11. GILENYA [Suspect]
     Active Substance: FINGOLIMOD HYDROCHLORIDE
     Indication: MULTIPLE SCLEROSIS
     Dosage: UNK UNK, QD
     Route: 048
  12. ALBUTEROL. [Concomitant]
     Active Substance: ALBUTEROL
     Indication: DYSPNOEA
     Route: 065
     Dates: start: 20140909
  13. PREDNISONE. [Concomitant]
     Active Substance: PREDNISONE
     Indication: DYSPNOEA
     Route: 065
     Dates: start: 20140910, end: 20140924
  14. PREDNISONE. [Concomitant]
     Active Substance: PREDNISONE
     Indication: COUGH
  15. SENNA [Concomitant]
     Active Substance: SENNA LEAF\SENNOSIDES\SENNOSIDES A AND B
     Indication: CONSTIPATION
     Route: 065
     Dates: start: 20140820, end: 20141120
  16. PREDNISONE. [Concomitant]
     Active Substance: PREDNISONE
     Indication: CHEST DISCOMFORT

REACTIONS (8)
  - Chest discomfort [Recovered/Resolved]
  - Depression [Recovered/Resolved]
  - Headache [Recovered/Resolved]
  - Dysphagia [Recovered/Resolved]
  - Blood alkaline phosphatase increased [Unknown]
  - Anxiety [Recovered/Resolved]
  - Chest discomfort [Unknown]
  - Neurogenic bladder [Recovered/Resolved]

NARRATIVE: CASE EVENT DATE: 20140813
